FAERS Safety Report 5022824-2 (Version None)
Quarter: 2006Q2

REPORT INFORMATION
  Report Type: 
  Country: None (occurrence: None)
  Receive Date: 20060426
  Receipt Date: 20060301
  Transmission Date: 20061013
  Serious: Yes (Other)
  Sender: FDA-Public Use
  Company Number: 2006030353

PATIENT
  Sex: Male

DRUGS (1)
  1. LYRICA [Suspect]
     Indication: ILL-DEFINED DISORDER
     Dosage: 75 MG

REACTIONS (2)
  - CARDIAC DISORDER [None]
  - HEART RATE IRREGULAR [None]
